FAERS Safety Report 7315691-5 (Version None)
Quarter: 2011Q1

REPORT INFORMATION
  Report Type: 
  Country: None (occurrence: None)
  Receive Date: 20110225
  Receipt Date: 20110210
  Transmission Date: 20110831
  Serious: Yes (Other)
  Sender: FDA-Public Use
  Company Number: US-CELGENEUS-163-21880-11021692

PATIENT
  Sex: Female
  Weight: 83.18 kg

DRUGS (1)
  1. REVLIMID [Suspect]
     Indication: MULTIPLE MYELOMA
     Route: 048
     Dates: start: 20100809

REACTIONS (4)
  - BREAST LUMP REMOVAL [None]
  - SINUS CONGESTION [None]
  - RASH [None]
  - EAR CONGESTION [None]
